FAERS Safety Report 11112224 (Version 2)
Quarter: 2015Q2

REPORT INFORMATION
  Report Type: Spontaneous
  Country: US (occurrence: None)
  Receive Date: 20150512
  Receipt Date: 20150513
  Transmission Date: 20150821
  Serious: Yes (Other)
  Sender: FDA-Public Use
  Company Number: SIM_00639_2015

PATIENT
  Sex: Female

DRUGS (1)
  1. EAR WAX RELIEF (HOMEOPATHIC) [Suspect]
     Active Substance: HOMEOPATHICS
     Indication: PRODUCT USED FOR UNKNOWN INDICATION
     Dosage: 2 DROPS IN RIGHT EYE/ONCE
     Route: 047
     Dates: start: 20150427, end: 20150427

REACTIONS (6)
  - Eye irritation [None]
  - Incorrect route of drug administration [None]
  - Eye swelling [None]
  - Ocular hyperaemia [None]
  - Lacrimation increased [None]
  - Vision blurred [None]

NARRATIVE: CASE EVENT DATE: 20150427
